FAERS Safety Report 8845687 (Version 2)
Quarter: 2012Q4

REPORT INFORMATION
  Report Type: 
  Country: AU (occurrence: AU)
  Receive Date: 20121017
  Receipt Date: 20121023
  Transmission Date: 20130627
  Serious: Yes (Other)
  Sender: FDA-Public Use
  Company Number: AU-ROCHE-1144261

PATIENT
  Sex: Male

DRUGS (2)
  1. RANIBIZUMAB [Suspect]
     Indication: AGE-RELATED MACULAR DEGENERATION
     Route: 050
  2. RANIBIZUMAB [Suspect]
     Route: 050

REACTIONS (5)
  - Glaucoma [Unknown]
  - Optic nerve cup/disc ratio increased [Unknown]
  - Optic neuropathy [Unknown]
  - Age-related macular degeneration [Unknown]
  - Intraocular pressure increased [Unknown]
